FAERS Safety Report 11317994 (Version 1)
Quarter: 2015Q3

REPORT INFORMATION
  Report Type: Spontaneous
  Country: IT (occurrence: IT)
  Receive Date: 20150728
  Receipt Date: 20150728
  Transmission Date: 20151125
  Serious: Yes (Hospitalization)
  Sender: FDA-Public Use
  Company Number: IT-BAYER-2015-388679

PATIENT
  Age: 84 Year
  Sex: Female

DRUGS (7)
  1. ARIXTRA [Suspect]
     Active Substance: FONDAPARINUX SODIUM
     Indication: ANGIOPLASTY
     Dosage: DAILY DOSE 1 DF
     Route: 058
     Dates: start: 20150518, end: 20150531
  2. CARDURA [Concomitant]
     Active Substance: DOXAZOSIN MESYLATE
     Route: 048
  3. SIVASTIN [Concomitant]
     Active Substance: SIMVASTATIN
     Route: 048
  4. OMEPRAZOLE. [Concomitant]
     Active Substance: OMEPRAZOLE
     Route: 048
  5. PARACETAMOL [Concomitant]
     Active Substance: ACETAMINOPHEN
     Route: 048
  6. CARDICOR [Concomitant]
     Active Substance: BISOPROLOL
     Route: 048
  7. ACETYLSALICYLIC ACID({=100 MG) [Suspect]
     Active Substance: ASPIRIN
     Indication: ANGIOPLASTY
     Dosage: DAILY DOSE 100 MG
     Route: 048
     Dates: start: 20150518, end: 20150531

REACTIONS (1)
  - Haematoma [Unknown]

NARRATIVE: CASE EVENT DATE: 20150531
